FAERS Safety Report 10305881 (Version 1)
Quarter: 2014Q3

REPORT INFORMATION
  Report Type: Spontaneous
  Country: US (occurrence: None)
  Receive Date: 20140711
  Receipt Date: 20140711
  Transmission Date: 20150326
  Serious: Yes (Hospitalization, Other)
  Sender: FDA-Public Use
  Company Number: VAL_03179_2014

PATIENT
  Age: 24 Year
  Sex: Male

DRUGS (1)
  1. EQUETRO [Suspect]
     Active Substance: CARBAMAZEPINE
     Indication: PRODUCT USED FOR UNKNOWN INDICATION
     Dates: start: 20140512, end: 20140603

REACTIONS (3)
  - Acute generalised exanthematous pustulosis [None]
  - Pyrexia [None]
  - Hepatic failure [None]

NARRATIVE: CASE EVENT DATE: 2014
